FAERS Safety Report 25187336 (Version 1)
Quarter: 2025Q2

REPORT INFORMATION
  Report Type: Spontaneous
  Country: US (occurrence: US)
  Receive Date: 20250411
  Receipt Date: 20250411
  Transmission Date: 20250717
  Serious: No
  Sender: ABBVIE
  Company Number: US-ABBVIE-6212429

PATIENT
  Age: 48 Year
  Sex: Female

DRUGS (1)
  1. HUMIRA [Suspect]
     Active Substance: ADALIMUMAB
     Indication: Behcet^s syndrome
     Route: 058

REACTIONS (5)
  - Off label use [Unknown]
  - Injection site haemorrhage [Unknown]
  - Injection site pain [Unknown]
  - Injection site discharge [Unknown]
  - Wrong technique in product usage process [Unknown]
